FAERS Safety Report 25899244 (Version 2)
Quarter: 2025Q4

REPORT INFORMATION
  Report Type: Report from Study
  Country: US (occurrence: US)
  Receive Date: 20251009
  Receipt Date: 20251127
  Transmission Date: 20260117
  Serious: No
  Sender: SANDOZ
  Company Number: US-SANDOZ-SDZ2025US072785

PATIENT
  Sex: Female

DRUGS (4)
  1. OMNITROPE [Suspect]
     Active Substance: SOMATROPIN
     Dosage: 1.4 MG/KG(MILIGRAM/KILOGRAM), QD ( OMNITROPE 10 MG/1.5 ML SOLUTION FOR INJECTION IN CARTRIDGE)
     Route: 058
  2. OMNITROPE [Suspect]
     Active Substance: SOMATROPIN
     Dosage: 1.4 MG/KG(MILIGRAM/KILOGRAM), QD ( OMNITROPE 10 MG/1.5 ML SOLUTION FOR INJECTION IN CARTRIDGE)
     Route: 058
  3. OMNITROPE [Suspect]
     Active Substance: SOMATROPIN
     Indication: Short stature
     Dosage: 1.4 MG, QD
     Route: 058
     Dates: start: 20250930, end: 20251001
  4. OMNITROPE [Suspect]
     Active Substance: SOMATROPIN
     Indication: Short stature
     Dosage: 1.4 MG, QD
     Route: 058
     Dates: start: 20250930, end: 20251001

REACTIONS (5)
  - Injection site haemorrhage [Unknown]
  - Injection site pain [Unknown]
  - Injection site discharge [Unknown]
  - Device leakage [Unknown]
  - Product storage error [Unknown]

NARRATIVE: CASE EVENT DATE: 20250101
